FAERS Safety Report 18269236 (Version 1)
Quarter: 2020Q3

REPORT INFORMATION
  Report Type: Spontaneous
  Country: DZ (occurrence: DZ)
  Receive Date: 20200915
  Receipt Date: 20200915
  Transmission Date: 20201103
  Serious: Yes (Hospitalization, Other)
  Sender: FDA-Public Use
  Company Number: DZ-JAZZ-2019-DZ-014230

PATIENT
  Age: 51 Year
  Sex: Female

DRUGS (2)
  1. KIDROLASE [Suspect]
     Active Substance: ASPARAGINASE
     Indication: ACUTE LYMPHOCYTIC LEUKAEMIA
     Dosage: 80000 IU, J17 TO J24
     Route: 042
     Dates: start: 20190920, end: 20190927
  2. SOLU?MEDROL [Concomitant]
     Active Substance: METHYLPREDNISOLONE SODIUM SUCCINATE
     Indication: ACUTE LYMPHOCYTIC LEUKAEMIA
     Dosage: 80 MG, J1 TO J28
     Route: 042
     Dates: start: 20190904, end: 20190928

REACTIONS (2)
  - Hepatic function abnormal [Not Recovered/Not Resolved]
  - Jaundice [Not Recovered/Not Resolved]

NARRATIVE: CASE EVENT DATE: 20190922
